FAERS Safety Report 12966690 (Version 1)
Quarter: 2016Q4

REPORT INFORMATION
  Report Type: Spontaneous
  Country: US (occurrence: US)
  Receive Date: 20161119
  Receipt Date: 20161119
  Transmission Date: 20170207
  Serious: No
  Sender: FDA-Public Use
  Company Number: None

PATIENT
  Age: 70 Year
  Sex: Female

DRUGS (1)
  1. SIMPONI [Suspect]
     Active Substance: GOLIMUMAB
     Indication: RHEUMATOID ARTHRITIS
     Dosage: 50MG Q 4 WEEKS SC
     Route: 058
     Dates: start: 20161016

REACTIONS (7)
  - Fatigue [None]
  - Hypertension [None]
  - Nasal congestion [None]
  - Headache [None]
  - Sinus disorder [None]
  - Eye haemorrhage [None]
  - Neck pain [None]

NARRATIVE: CASE EVENT DATE: 20161019
